FAERS Safety Report 6328441-6 (Version None)
Quarter: 2009Q3

REPORT INFORMATION
  Report Type: 
  Country: None (occurrence: None)
  Receive Date: 20090825
  Receipt Date: 20090612
  Transmission Date: 20100115
  Serious: No
  Sender: FDA-Public Use
  Company Number: US-ABBOTT-09P-163-0579473-00

PATIENT
  Sex: Female
  Weight: 51.302 kg

DRUGS (2)
  1. SYNTHROID [Suspect]
     Indication: THYROIDECTOMY
     Route: 048
     Dates: start: 20090515, end: 20090601
  2. SYNTHROID [Suspect]
     Indication: HORMONE REPLACEMENT THERAPY
     Route: 048
     Dates: start: 20090101, end: 20090101

REACTIONS (2)
  - ABDOMINAL PAIN UPPER [None]
  - ADVERSE DRUG REACTION [None]
